FAERS Safety Report 9894059 (Version 1)
Quarter: 2014Q1

REPORT INFORMATION
  Report Type: Spontaneous
  Country: FR (occurrence: FR)
  Receive Date: 20140213
  Receipt Date: 20140213
  Transmission Date: 20141002
  Serious: Yes (Other)
  Sender: FDA-Public Use
  Company Number: FR-ASTRAZENECA-2014SE08773

PATIENT
  Age: 21875 Day
  Sex: Female

DRUGS (2)
  1. XYLOCAINE ADRENALINE [Suspect]
     Indication: ANAESTHESIA
     Dates: start: 20140131, end: 20140131
  2. BETADINE [Concomitant]
     Dates: start: 20140131, end: 20140131

REACTIONS (1)
  - Administration site reaction [Recovering/Resolving]
